FAERS Safety Report 8233245-3 (Version None)
Quarter: 2012Q1

REPORT INFORMATION
  Report Type: 
  Country: None (occurrence: None)
  Receive Date: 20120326
  Receipt Date: 20120321
  Transmission Date: 20120608
  Serious: No
  Sender: FDA-Public Use
  Company Number: US-PFIZER INC-2012074615

PATIENT
  Sex: Male
  Weight: 83.9 kg

DRUGS (4)
  1. SYNTHROID [Suspect]
     Indication: HYPOTHYROIDISM
     Dosage: UNK
  2. LISINOPRIL [Concomitant]
     Indication: HYPERTENSION
     Dosage: UNK
  3. LEVOXYL [Suspect]
     Indication: HYPOTHYROIDISM
     Dosage: 150 UG, 1X/DAY
     Dates: start: 20110101
  4. LEVOXYL [Suspect]
     Dosage: 100 UG, 1X/DAY
     Dates: start: 20120321

REACTIONS (1)
  - HYPERSENSITIVITY [None]
